FAERS Safety Report 9493745 (Version 1)
Quarter: 2013Q3

REPORT INFORMATION
  Report Type: Spontaneous
  Country: US (occurrence: US)
  Receive Date: 20130902
  Receipt Date: 20130902
  Transmission Date: 20140515
  Serious: No
  Sender: FDA-Public Use
  Company Number: US-JNJFOC-20130811823

PATIENT
  Age: 40 Year
  Sex: Male

DRUGS (3)
  1. INVEGA SUSTENNA [Suspect]
     Indication: BIPOLAR DISORDER
     Route: 030
     Dates: start: 201305
  2. KLONOPIN [Concomitant]
     Route: 065
  3. PROZAC [Concomitant]
     Route: 065

REACTIONS (4)
  - Irritability [Not Recovered/Not Resolved]
  - Libido decreased [Not Recovered/Not Resolved]
  - Therapeutic response decreased [Unknown]
  - Off label use [Unknown]
